FAERS Safety Report 6025206-X (Version None)
Quarter: 2008Q4

REPORT INFORMATION
  Report Type: 
  Country: None (occurrence: None)
  Receive Date: 20081224
  Receipt Date: 20081209
  Transmission Date: 20090506
  Serious: Yes (Hospitalization)
  Sender: FDA-Public Use
  Company Number: 2008SP025046

PATIENT
  Age: 26 Year
  Sex: Male
  Weight: 76 kg

DRUGS (2)
  1. PEG-INTRON [Suspect]
     Dosage: 70 MG,
     Dates: start: 20080428, end: 20080607
  2. PEG-INTRON [Suspect]
     Dosage: 70 MG,
     Dates: start: 20080609, end: 20081007

REACTIONS (5)
  - ABDOMINAL DISCOMFORT [None]
  - ALANINE AMINOTRANSFERASE INCREASED [None]
  - ANOREXIA [None]
  - ASPARTATE AMINOTRANSFERASE INCREASED [None]
  - FATIGUE [None]
